FAERS Safety Report 8702905 (Version 4)
Quarter: 2014Q1

REPORT INFORMATION
  Report Type: Spontaneous
  Country: US (occurrence: US)
  Receive Date: 20120803
  Receipt Date: 20140205
  Transmission Date: 20141002
  Serious: Yes (Hospitalization, Other)
  Sender: FDA-Public Use
  Company Number: US-ASTRAZENECA-2012SE51205

PATIENT
  Age: 66 Year
  Sex: Female
  Weight: 149.7 kg

DRUGS (9)
  1. SYMBICORT PMDI [Suspect]
     Route: 055
  2. NEXIUM [Suspect]
     Indication: DYSPEPSIA
     Route: 048
     Dates: start: 2012, end: 20131223
  3. NEXIUM [Suspect]
     Indication: GASTROOESOPHAGEAL REFLUX DISEASE
     Route: 048
     Dates: start: 2012, end: 20131223
  4. NEXIUM [Suspect]
     Indication: DYSPEPSIA
     Route: 048
     Dates: start: 20131225
  5. NEXIUM [Suspect]
     Indication: GASTROOESOPHAGEAL REFLUX DISEASE
     Route: 048
     Dates: start: 20131225
  6. ESTROGEN [Concomitant]
     Indication: MENOPAUSE
     Route: 048
     Dates: start: 2010
  7. ZOLOFT [Concomitant]
     Indication: DEPRESSION
     Dates: start: 2008
  8. KLONIPIN [Concomitant]
     Indication: NERVOUSNESS
     Route: 048
  9. IRON [Concomitant]
     Indication: ANAEMIA
     Route: 048
     Dates: start: 201311

REACTIONS (17)
  - Haematemesis [Unknown]
  - Vomiting [Unknown]
  - Anaemia [Unknown]
  - Asthenia [Unknown]
  - Cataract [Unknown]
  - Haematochezia [Unknown]
  - Bladder prolapse [Unknown]
  - Dyspepsia [Unknown]
  - Pain [Unknown]
  - Dyspepsia [Unknown]
  - Influenza [Unknown]
  - Hiatus hernia [Unknown]
  - Sleep disorder due to general medical condition, insomnia type [Unknown]
  - Nasopharyngitis [Unknown]
  - Dysphonia [Unknown]
  - Hypertension [Unknown]
  - Drug dose omission [Unknown]
